FAERS Safety Report 11194472 (Version 2)
Quarter: 2015Q3

REPORT INFORMATION
  Report Type: Spontaneous
  Country: BR (occurrence: BR)
  Receive Date: 20150616
  Receipt Date: 20150915
  Transmission Date: 20151125
  Serious: Yes (Other)
  Sender: FDA-Public Use
  Company Number: PHHY2013BR056526

PATIENT
  Age: 61 Year
  Sex: Female
  Weight: 68 kg

DRUGS (3)
  1. FORASEQ [Suspect]
     Active Substance: BUDESONIDE\FORMOTEROL FUMARATE
     Indication: BRONCHITIS CHRONIC
     Dosage: 2 DF, A DAY
     Route: 055
     Dates: start: 1996
  2. FORASEQ [Suspect]
     Active Substance: BUDESONIDE\FORMOTEROL FUMARATE
     Dosage: BID
     Route: 055
     Dates: start: 201505, end: 201506
  3. ASA [Concomitant]
     Active Substance: ASPIRIN
     Indication: PRODUCT USED FOR UNKNOWN INDICATION
     Dosage: 1 DF, QD
     Route: 048

REACTIONS (16)
  - Blood cholesterol increased [Recovering/Resolving]
  - Fatigue [Recovered/Resolved]
  - Appendicitis [Recovered/Resolved]
  - Psoriasis [Unknown]
  - Obstructive airways disorder [Unknown]
  - Expired product administered [Unknown]
  - Osteoarthritis [Unknown]
  - Arthritis [Unknown]
  - Bronchitis [Recovered/Resolved]
  - Appendicitis perforated [Recovered/Resolved]
  - Dyspnoea [Recovering/Resolving]
  - Forced expiratory volume decreased [Unknown]
  - Umbilical hernia [Not Recovered/Not Resolved]
  - Glucose tolerance impaired [Unknown]
  - Hypertension [Recovering/Resolving]
  - Sensitivity to weather change [Unknown]

NARRATIVE: CASE EVENT DATE: 2011
